FAERS Safety Report 6293569-6 (Version None)
Quarter: 2009Q3

REPORT INFORMATION
  Report Type: 
  Country: None (occurrence: None)
  Receive Date: 20090803
  Receipt Date: 20090728
  Transmission Date: 20100115
  Serious: No
  Sender: FDA-Public Use
  Company Number: US-B.I. PHARMACEUTICALS,INC./RIDGEFIELD-2009-BP-08904BP

PATIENT
  Sex: Male

DRUGS (9)
  1. FLOMAX [Suspect]
     Indication: PROSTATIC SPECIFIC ANTIGEN INCREASED
     Dosage: 0.4 MG
     Route: 048
     Dates: start: 20090721
  2. SINGULAIR [Concomitant]
     Indication: HYPERSENSITIVITY
  3. CETIRIZINE (ZYRTEC GENERIC) [Concomitant]
     Indication: HYPERSENSITIVITY
  4. LORAZEPAM [Concomitant]
     Indication: ANXIETY
  5. METOPROLOL TARTRATE [Concomitant]
     Indication: HYPERTENSION
  6. LISINOPRIL [Concomitant]
     Indication: HYPERTENSION
  7. HYDROCODONE [Concomitant]
     Indication: BACK PAIN
  8. ONDANSETRON [Concomitant]
     Indication: NAUSEA
  9. NEFAZODONE HCL [Concomitant]
     Indication: DEPRESSION

REACTIONS (2)
  - DRUG INEFFECTIVE [None]
  - NOCTURIA [None]
